FAERS Safety Report 4641079-1 (Version None)
Quarter: 2005Q2

REPORT INFORMATION
  Report Type: 
  Country: None (occurrence: None)
  Receive Date: 20050419
  Receipt Date: 20050419
  Transmission Date: 20051028
  Serious: Yes (Death, Life-Threatening, Hospitalization, Disabling, Congenital Anomaly)
  Sender: FDA-Public Use
  Company Number: None

PATIENT
  Age: 13 Day
  Sex: Female
  Weight: 3.1752 kg

DRUGS (4)
  1. ZOLOFT [Suspect]
     Indication: POSTPARTUM DEPRESSION
     Dosage: 100MG   ONCE DAILY    ORAL
     Route: 048
     Dates: start: 20040220, end: 20040731
  2. PROTONIX [Concomitant]
  3. METHYLDOPA [Concomitant]
  4. VITAMIN AND MINERAL PRENATAL SUPPLEMENT W/ FOLIC ACID CAP [Concomitant]

REACTIONS (12)
  - CLEFT LIP AND PALATE [None]
  - CONGENITAL ANOMALY [None]
  - DEFORMITY [None]
  - DRUG EXPOSURE DURING PREGNANCY [None]
  - DYSPHAGIA [None]
  - EBSTEIN'S ANOMALY [None]
  - HORSESHOE KIDNEY [None]
  - NEONATAL DISORDER [None]
  - NERVOUS SYSTEM DISORDER [None]
  - POOR SUCKING REFLEX [None]
  - PULMONARY OEDEMA NEONATAL [None]
  - VENTRICULAR SEPTAL DEFECT [None]
